FAERS Safety Report 13128976 (Version 1)
Quarter: 2017Q1

REPORT INFORMATION
  Report Type: Spontaneous
  Country: ES (occurrence: ES)
  Receive Date: 20170119
  Receipt Date: 20170119
  Transmission Date: 20170428
  Serious: Yes (Other)
  Sender: FDA-Public Use
  Company Number: ES-AMGEN-ESPSP2017006840

PATIENT
  Age: 89 Year
  Sex: Female

DRUGS (6)
  1. DIGOXIN. [Concomitant]
     Active Substance: DIGOXIN
  2. PROLIA [Suspect]
     Active Substance: DENOSUMAB
     Indication: PRODUCT USED FOR UNKNOWN INDICATION
     Dosage: UNK
     Route: 065
     Dates: start: 201603
  3. SEGURIL [Concomitant]
     Active Substance: FUROSEMIDE
  4. SINTROM [Concomitant]
     Active Substance: ACENOCOUMAROL
  5. COZAAR PLUS [Concomitant]
  6. COROPRES [Concomitant]
     Active Substance: CARVEDILOL

REACTIONS (2)
  - Fall [Unknown]
  - Spinal compression fracture [Unknown]

NARRATIVE: CASE EVENT DATE: 2016
